FAERS Safety Report 5119110-9 (Version None)
Quarter: 2006Q3

REPORT INFORMATION
  Report Type: 
  Country: None (occurrence: None)
  Receive Date: 20060926
  Receipt Date: 20060914
  Transmission Date: 20061208
  Serious: Yes (Hospitalization)
  Sender: FDA-Public Use
  Company Number: TCI2006A02225

PATIENT
  Age: 74 Year
  Sex: Male

DRUGS (6)
  1. ACTOS [Suspect]
     Indication: INSULIN-REQUIRING TYPE II DIABETES MELLITUS
     Dosage: 15 MG (15 MG, 1-2 ) 0 MG PER ORAL
     Route: 048
     Dates: start: 20051018
  2. PLACEBO (PLACEBO) [Suspect]
     Indication: INSULIN-REQUIRING TYPE II DIABETES MELLITUS
     Dosage: O MG, PER ORAL
     Route: 048
     Dates: start: 20051115
  3. HALCION [Concomitant]
  4. MICARDIS [Concomitant]
  5. ASPIRIN [Concomitant]
  6. LENDORMIN D (BROTIZOLAM) [Concomitant]

REACTIONS (1)
  - BLADDER CANCER [None]
